FAERS Safety Report 18520369 (Version 2)
Quarter: 2020Q4

REPORT INFORMATION
  Report Type: Report from Study
  Country: BR (occurrence: BR)
  Receive Date: 20201119
  Receipt Date: 20201223
  Transmission Date: 20210114
  Serious: Yes (Death, Hospitalization, Other)
  Sender: FDA-Public Use
  Company Number: BR-AMGEN-BRACT2013015951

PATIENT
  Age: 66 Year
  Sex: Female
  Weight: 64 kg

DRUGS (12)
  1. ENBREL [Suspect]
     Active Substance: ETANERCEPT
     Indication: RHEUMATOID ARTHRITIS
     Dosage: 50 MG, ONCE A WEEK
     Route: 065
     Dates: end: 201208
  2. CALCORT [Concomitant]
     Active Substance: DEFLAZACORT
     Dosage: 3 MG, ONCE A DAY
  3. CONCOR [Concomitant]
     Active Substance: BISOPROLOL FUMARATE
     Indication: CARDIAC DISORDER
     Dosage: 5 MG, ONCE A DAY
  4. ARAVA [Concomitant]
     Active Substance: LEFLUNOMIDE
     Indication: RHEUMATOID ARTHRITIS
     Dosage: UNK
  5. ENBREL [Suspect]
     Active Substance: ETANERCEPT
     Dosage: UNK
     Route: 065
     Dates: end: 201208
  6. ENBREL [Suspect]
     Active Substance: ETANERCEPT
     Dosage: UNK
     Route: 065
     Dates: end: 201806
  7. NAPROX [Concomitant]
     Dosage: 500 MG, ONCE A DAY
  8. OMEPRAZOLE. [Concomitant]
     Active Substance: OMEPRAZOLE
     Dosage: 20 MG, ONCE A DAY
  9. CARDIVAS [AMLODIPINE BESILATE] [Concomitant]
     Dosage: 85 MG, ONCE A DAY
  10. CALCIO + VIT D [Concomitant]
     Active Substance: CALCIUM CARBONATE\VITAMIN D
     Dosage: CALCIUM 600MG PLUS 400 UNITS OF VITAMIN D, ONCE A DAY
  11. DIOVAN HCT [Concomitant]
     Active Substance: HYDROCHLOROTHIAZIDE\VALSARTAN
     Indication: BLOOD PRESSURE INCREASED
     Dosage: 160 MG, ONCE A DAY
  12. METHOTREXATE. [Concomitant]
     Active Substance: METHOTREXATE
     Dosage: 3 TABLETS (UNSPECIFIED DOSE) ONCE A WEEK

REACTIONS (10)
  - Insomnia [Unknown]
  - Asthenia [Unknown]
  - Pain in extremity [Unknown]
  - Spinal pain [Unknown]
  - Arthralgia [Unknown]
  - Intervertebral disc protrusion [Unknown]
  - Infection [Fatal]
  - Gait disturbance [Unknown]
  - Drug ineffective [Unknown]
  - Pneumonia [Unknown]

NARRATIVE: CASE EVENT DATE: 201201
